FAERS Safety Report 5070980-2 (Version None)
Quarter: 2006Q3

REPORT INFORMATION
  Report Type: 
  Country: None (occurrence: None)
  Receive Date: 20060714
  Receipt Date: 20060424
  Transmission Date: 20061208
  Serious: No
  Sender: FDA-Public Use
  Company Number: 2006SP001828

PATIENT
  Age: 46 Year
  Sex: Male

DRUGS (2)
  1. LUNESTA [Suspect]
     Dosage: 3 MG;HS; ORAL
     Route: 048
     Dates: start: 20060101, end: 20060418
  2. LITHIUM [Concomitant]

REACTIONS (4)
  - ANXIETY [None]
  - HEADACHE [None]
  - MIDDLE INSOMNIA [None]
  - MUSCLE SPASMS [None]
